FAERS Safety Report 17878966 (Version 1)
Quarter: 2020Q2

REPORT INFORMATION
  Report Type: Spontaneous
  Country: FR (occurrence: FR)
  Receive Date: 20200610
  Receipt Date: 20200610
  Transmission Date: 20200714
  Serious: Yes (Other)
  Sender: FDA-Public Use
  Company Number: FR-TEVA-2020-FR-1245285

PATIENT
  Age: 37 Year
  Sex: Male

DRUGS (5)
  1. LANSOPRAZOLE. [Suspect]
     Active Substance: LANSOPRAZOLE
     Dosage: 30 MG
     Route: 048
     Dates: start: 20200319, end: 20200429
  2. DAPTOMYCINE [Suspect]
     Active Substance: DAPTOMYCIN
     Dosage: 10 MG/KG
     Dates: start: 20200403, end: 20200414
  3. CANCIDAS [Suspect]
     Active Substance: CASPOFUNGIN ACETATE
     Dosage: POWDER FOR CONCENTRATE FOR SOLUTION FOR INFUSION, 70 MG
     Route: 042
     Dates: start: 20200414, end: 20200429
  4. AMOXICILLINE [Suspect]
     Active Substance: AMOXICILLIN
     Dosage: 3 GRAM
     Route: 042
     Dates: start: 20200414, end: 20200501
  5. CEFEPIME [Concomitant]
     Active Substance: CEFEPIME HYDROCHLORIDE
     Dosage: 6 GRAM
     Route: 042
     Dates: start: 20200406

REACTIONS (2)
  - Hepatocellular injury [Recovering/Resolving]
  - Cholestasis [Recovering/Resolving]

NARRATIVE: CASE EVENT DATE: 20200430
